FAERS Safety Report 24163861 (Version 1)
Quarter: 2024Q3

REPORT INFORMATION
  Report Type: Report from Study
  Country: IL (occurrence: IL)
  Receive Date: 20240801
  Receipt Date: 20240801
  Transmission Date: 20241016
  Serious: Yes (Hospitalization)
  Sender: ABBVIE
  Company Number: IL-ABBVIE-5860652

PATIENT
  Age: 74 Year
  Sex: Male

DRUGS (4)
  1. HUMIRA [Suspect]
     Active Substance: ADALIMUMAB
     Indication: Crohn^s disease
     Dosage: FORM STRENGTH: 80 MILLIGRAM
     Route: 058
     Dates: start: 20221114, end: 202304
  2. HUMIRA [Suspect]
     Active Substance: ADALIMUMAB
     Dosage: FORM STRENGTH: 80 MILLIGRAM
     Route: 058
     Dates: start: 202304
  3. Fusid [Concomitant]
     Indication: Product used for unknown indication
  4. PAXLOVID [Concomitant]
     Active Substance: NIRMATRELVIR\RITONAVIR
     Indication: COVID-19

REACTIONS (15)
  - Pulmonary oedema [Recovered/Resolved]
  - Decreased appetite [Unknown]
  - Mitral valve incompetence [Unknown]
  - Fungal skin infection [Recovered/Resolved]
  - Cardiac failure [Unknown]
  - Drug level decreased [Unknown]
  - Pericardial effusion [Unknown]
  - COVID-19 [Unknown]
  - Pleural effusion [Unknown]
  - Aortic aneurysm [Unknown]
  - Aortic valve incompetence [Unknown]
  - Eye infection [Unknown]
  - Pulmonary hypertension [Unknown]
  - Aphthous ulcer [Unknown]
  - Inflammation [Unknown]

NARRATIVE: CASE EVENT DATE: 20230401
